FAERS Safety Report 17495362 (Version 2)
Quarter: 2020Q2

REPORT INFORMATION
  Report Type: Spontaneous
  Country: US (occurrence: US)
  Receive Date: 20200303
  Receipt Date: 20200407
  Transmission Date: 20200713
  Serious: Yes (Other)
  Sender: FDA-Public Use
  Company Number: US-INCYTE CORPORATION-2020IN001641

PATIENT

DRUGS (7)
  1. DIFLUCAN [Concomitant]
     Active Substance: FLUCONAZOLE
     Indication: PRODUCT USED FOR UNKNOWN INDICATION
     Dosage: 40 MG/ML QD
     Route: 048
  2. AMOXICILLIN. [Concomitant]
     Active Substance: AMOXICILLIN
     Indication: PRODUCT USED FOR UNKNOWN INDICATION
     Dosage: 20MG QAM 15MG QPM
     Route: 065
  3. FLOVENT HFA [Concomitant]
     Active Substance: FLUTICASONE PROPIONATE
     Indication: PRODUCT USED FOR UNKNOWN INDICATION
     Dosage: 110 MCG/ACT, BID
  4. AZACITIDINE. [Concomitant]
     Active Substance: AZACITIDINE
     Indication: PRODUCT USED FOR UNKNOWN INDICATION
     Route: 065
  5. JAKAFI [Suspect]
     Active Substance: RUXOLITINIB
     Indication: MYELOFIBROSIS
     Dosage: UNK
     Route: 065
     Dates: start: 201806
  6. JAKAFI [Suspect]
     Active Substance: RUXOLITINIB
     Dosage: 10 MILLIGRAM, BID
     Route: 065
  7. SCOPOLAMINE HCL [Suspect]
     Active Substance: SCOPOLAMINE
     Indication: PRODUCT USED FOR UNKNOWN INDICATION
     Route: 062

REACTIONS (23)
  - Hallucination [Recovered/Resolved]
  - Ill-defined disorder [Unknown]
  - Cough [Recovered/Resolved]
  - Eczema [Unknown]
  - Blast cell count decreased [Unknown]
  - Transaminases increased [Unknown]
  - Vitamin D deficiency [Unknown]
  - Productive cough [Unknown]
  - Respiratory syncytial virus test positive [Unknown]
  - Erythema [Unknown]
  - Scar [Unknown]
  - Sleep disorder [Unknown]
  - Off label use [Unknown]
  - Nausea [Unknown]
  - Renal hypertrophy [Unknown]
  - Procedural pain [Unknown]
  - Product use issue [Unknown]
  - Vomiting [Unknown]
  - Anxiety [Unknown]
  - Rhinorrhoea [Recovered/Resolved]
  - Eating disorder [Unknown]
  - Immunodeficiency [Unknown]
  - Hypertension [Unknown]
